FAERS Safety Report 20388409 (Version 2)
Quarter: 2022Q3

REPORT INFORMATION
  Report Type: Spontaneous
  Country: NL (occurrence: NL)
  Receive Date: 20220128
  Receipt Date: 20220726
  Transmission Date: 20221027
  Serious: Yes (Other)
  Sender: FDA-Public Use
  Company Number: NL-CELLTRION HEALTHCARE HUNGARY KFT-2022NL000308

PATIENT
  Age: 54 Year
  Sex: Male

DRUGS (9)
  1. DOCETAXEL [Suspect]
     Active Substance: DOCETAXEL
     Indication: HER2 positive salivary gland cancer
     Dosage: 75 MILLIGRAM/SQ. METER (6 DOSAGES OF DOCETAXEL (75MG/M2))
     Route: 042
  2. ADO-TRASTUZUMAB EMTANSINE [Suspect]
     Active Substance: ADO-TRASTUZUMAB EMTANSINE
     Indication: HER2 positive salivary gland cancer
     Dosage: 3.6 MILLIGRAM/KILOGRAM (EVERY 3 WEEKS)
     Route: 042
  3. TRASTUZUMAB [Suspect]
     Active Substance: TRASTUZUMAB
     Indication: HER2 positive salivary gland cancer
     Dosage: 8 MILLIGRAM/KILOGRAM (STARTING DOSE 8 MG/KG)
     Route: 042
  4. TRASTUZUMAB [Suspect]
     Active Substance: TRASTUZUMAB
     Dosage: 6 MILLIGRAM/KILOGRAM (SUBSEQUENT DOSAGES)
     Route: 042
  5. PERTUZUMAB [Suspect]
     Active Substance: PERTUZUMAB
     Indication: HER2 positive salivary gland cancer
     Dosage: 420 MILLIGRAM (SUBSEQUENT DOSAGES)
     Route: 042
  6. PERTUZUMAB [Suspect]
     Active Substance: PERTUZUMAB
     Dosage: 840 MILLIGRAM (6 DOSAGES OF DOCETAXEL (75 MG/M2), EVERY 3 WEEKS)
     Route: 065
  7. CISPLATIN [Concomitant]
     Active Substance: CISPLATIN
     Indication: Drug withdrawal syndrome
     Dosage: UNK
     Route: 065
  8. ETOPOSIDE [Concomitant]
     Active Substance: ETOPOSIDE
     Indication: Drug withdrawal syndrome
     Dosage: UNK
     Route: 065
  9. IFOSFAMIDE [Concomitant]
     Active Substance: IFOSFAMIDE
     Indication: Drug withdrawal syndrome
     Dosage: UNK
     Route: 065

REACTIONS (4)
  - Salivary gland cancer [Unknown]
  - Disease progression [Unknown]
  - Therapy partial responder [Unknown]
  - Off label use [Unknown]
